FAERS Safety Report 23649862 (Version 1)
Quarter: 2024Q1

REPORT INFORMATION
  Report Type: Spontaneous
  Country: US (occurrence: None)
  Receive Date: 20240319
  Receipt Date: 20240319
  Transmission Date: 20240409
  Serious: No
  Sender: FDA-Public Use
  Company Number: US-ROCHE-3314044

PATIENT
  Sex: Male

DRUGS (2)
  1. ERIVEDGE [Suspect]
     Active Substance: VISMODEGIB
     Indication: Basal cell carcinoma
     Route: 048
     Dates: start: 202207
  2. ERIVEDGE [Suspect]
     Active Substance: VISMODEGIB
     Indication: Aortic aneurysm

REACTIONS (2)
  - Fall [Unknown]
  - Limb injury [Unknown]
